FAERS Safety Report 6129411-3 (Version None)
Quarter: 2009Q1

REPORT INFORMATION
  Report Type: 
  Country: None (occurrence: None)
  Receive Date: 20090324
  Receipt Date: 20090310
  Transmission Date: 20090719
  Serious: Yes (Other)
  Sender: FDA-Public Use
  Company Number: PHHY2008ES26902

PATIENT
  Age: 50 Year
  Sex: Male

DRUGS (6)
  1. LEPONEX [Suspect]
     Indication: SCHIZOPHRENIA, PARANOID TYPE
     Dosage: 300 MG
     Route: 048
     Dates: start: 19970101
  2. LEPONEX [Suspect]
     Dosage: 250 MG
     Route: 048
  3. LEPONEX [Suspect]
     Dosage: 225 MG
     Route: 048
  4. LEXATIN [Concomitant]
  5. TRIALMIN [Concomitant]
  6. DIAMICRON [Concomitant]

REACTIONS (3)
  - ALANINE AMINOTRANSFERASE INCREASED [None]
  - HEPATITIS C [None]
  - HEPATITIS C ANTIBODY POSITIVE [None]
